FAERS Safety Report 6385501-1 (Version None)
Quarter: 2009Q4

REPORT INFORMATION
  Report Type: 
  Country: None (occurrence: None)
  Receive Date: 20091002
  Receipt Date: 20081118
  Transmission Date: 20100525
  Serious: No
  Sender: FDA-Public Use
  Company Number: US-ASTRAZENECA-2008UW19082

PATIENT
  Age: 65 Year
  Sex: Female
  Weight: 78 kg

DRUGS (7)
  1. ARIMIDEX [Suspect]
     Indication: BREAST CANCER
     Route: 048
     Dates: start: 20060907
  2. ACTONEL [Concomitant]
     Indication: HYPERTENSION
     Route: 048
     Dates: start: 20080401
  3. CELEBREX [Concomitant]
     Indication: OSTEOARTHRITIS
     Route: 048
     Dates: start: 20001001
  4. ATENOLOL [Concomitant]
     Dates: start: 20080801
  5. WELLBUTRIN [Concomitant]
     Indication: DEPRESSION
     Route: 048
     Dates: start: 20070401
  6. NEURONTIN [Concomitant]
     Indication: SCOLIOSIS
     Route: 048
     Dates: start: 20060501
  7. PRILOSEC [Concomitant]
     Indication: GASTROOESOPHAGEAL REFLUX DISEASE
     Route: 048
     Dates: start: 20070201

REACTIONS (6)
  - ALOPECIA [None]
  - HAIR GROWTH ABNORMAL [None]
  - INCREASED TENDENCY TO BRUISE [None]
  - SKIN ATROPHY [None]
  - SKIN HAEMORRHAGE [None]
  - SKIN LACERATION [None]
